FAERS Safety Report 16456126 (Version 2)
Quarter: 2019Q3

REPORT INFORMATION
  Report Type: Report from Study
  Country: NL (occurrence: NL)
  Receive Date: 20190620
  Receipt Date: 20190715
  Transmission Date: 20191004
  Serious: Yes (Death)
  Sender: FDA-Public Use
  Company Number: NL-TOLMAR, INC.-2019NL006267

PATIENT

DRUGS (9)
  1. ASCAL                              /00002702/ [Concomitant]
     Active Substance: ASPIRIN CALCIUM
     Route: 065
  2. METFORMINE                         /00082702/ [Concomitant]
     Active Substance: METFORMIN HYDROCHLORIDE
     Route: 065
  3. ATORVASTATIN [Concomitant]
     Active Substance: ATORVASTATIN
     Route: 065
  4. DOXAZOSINE                         /00639301/ [Concomitant]
     Active Substance: DOXAZOSIN MESYLATE
     Route: 065
  5. NOVORAPID [Concomitant]
     Active Substance: INSULIN ASPART
     Route: 065
  6. TELMISARTAN. [Concomitant]
     Active Substance: TELMISARTAN
     Route: 065
  7. CARVEDILOL. [Concomitant]
     Active Substance: CARVEDILOL
     Route: 065
  8. ELIGARD [Suspect]
     Active Substance: LEUPROLIDE ACETATE
     Indication: PROSTATE CANCER
     Dosage: 45 MG, EVERY 6 MONTHS
     Route: 058
     Dates: start: 20181231
  9. LANTUS [Concomitant]
     Active Substance: INSULIN GLARGINE
     Route: 065

REACTIONS (1)
  - Death [Fatal]
